FAERS Safety Report 14153867 (Version 2)
Quarter: 2018Q1

REPORT INFORMATION
  Report Type: Spontaneous
  Country: JP (occurrence: JP)
  Receive Date: 20171102
  Receipt Date: 20180119
  Transmission Date: 20180508
  Serious: Yes (Death)
  Sender: FDA-Public Use
  Company Number: JP-NAPPMUNDI-GBR-2017-0050286

PATIENT
  Sex: Female

DRUGS (1)
  1. OXYCONTIN [Suspect]
     Active Substance: OXYCODONE HYDROCHLORIDE
     Indication: UTERINE CANCER
     Dosage: UNK
     Route: 048

REACTIONS (3)
  - Uterine cancer [Fatal]
  - Diarrhoea [Unknown]
  - Constipation [Recovering/Resolving]
